FAERS Safety Report 20873022 (Version 1)
Quarter: 2022Q2

REPORT INFORMATION
  Report Type: Spontaneous
  Country: FR (occurrence: FR)
  Receive Date: 20220525
  Receipt Date: 20220525
  Transmission Date: 20220721
  Serious: Yes (Hospitalization)
  Sender: FDA-Public Use
  Company Number: None

PATIENT
  Age: 78 Year
  Sex: Male

DRUGS (3)
  1. CLINDAMYCIN [Suspect]
     Active Substance: CLINDAMYCIN
     Indication: Lung abscess
     Dosage: 600 MG, 3X/DAY
     Route: 048
     Dates: start: 20210909, end: 20210928
  2. CEFEPIME [Suspect]
     Active Substance: CEFEPIME HYDROCHLORIDE
     Indication: Lung abscess
     Dosage: UNSPECIFIED
     Route: 042
     Dates: start: 20210909, end: 20210928
  3. OFLOXACIN [Suspect]
     Active Substance: OFLOXACIN
     Indication: Lung abscess
     Dosage: 200 MG, 2X/DAY
     Route: 048
     Dates: start: 20210909, end: 20210928

REACTIONS (1)
  - Toxic skin eruption [Recovering/Resolving]

NARRATIVE: CASE EVENT DATE: 20210923
